FAERS Safety Report 5885159-1 (Version None)
Quarter: 2008Q3

REPORT INFORMATION
  Report Type: 
  Country: None (occurrence: None)
  Receive Date: 20080915
  Receipt Date: 20080915
  Transmission Date: 20090109
  Serious: Yes (Other)
  Sender: FDA-Public Use
  Company Number: None

PATIENT
  Age: 54 Year
  Sex: Female
  Weight: 52.1637 kg

DRUGS (2)
  1. PROAIR HFA [Suspect]
     Indication: ASTHMA
     Dosage: 2 PUFFS  4 TIMS A DAY
     Dates: start: 20080911, end: 20080912
  2. PROAIR HFA [Suspect]
     Indication: CHRONIC OBSTRUCTIVE PULMONARY DISEASE
     Dosage: 2 PUFFS  4 TIMS A DAY
     Dates: start: 20080911, end: 20080912

REACTIONS (3)
  - CONDITION AGGRAVATED [None]
  - LUNG DISORDER [None]
  - RESPIRATORY DISORDER [None]
